FAERS Safety Report 9032113 (Version 5)
Quarter: 2013Q4

REPORT INFORMATION
  Report Type: Report from Study
  Country: US (occurrence: US)
  Receive Date: 20130122
  Receipt Date: 20131025
  Transmission Date: 20140711
  Serious: Yes (Death, Life-Threatening, Hospitalization)
  Sender: FDA-Public Use
  Company Number: US-ACTELION-A-NJ2012-76221

PATIENT
  Age: 85 Year
  Sex: Male

DRUGS (13)
  1. TRACLEER [Suspect]
     Indication: PULMONARY ARTERIAL HYPERTENSION
     Dosage: 125 MG, BID
     Route: 048
     Dates: start: 201212, end: 20130910
  2. TRACLEER [Suspect]
     Dosage: 62.5 MG, BID
     Route: 048
     Dates: start: 201211, end: 201212
  3. COUMADIN [Concomitant]
     Dosage: 7.5 - 10 MG, QD
  4. TORSEMIDE [Concomitant]
     Dosage: 100 MG, UNK
  5. OS-CAL [Concomitant]
     Dosage: UNK, QD
  6. POTASSIUM [Concomitant]
     Dosage: 20 MEQ, QD
  7. OMEPRAZOLE [Concomitant]
     Dosage: 20 MG, QD
  8. SPIRONOLACTONE [Concomitant]
     Dosage: 12.5 MG, BID
  9. METOPROLOL [Concomitant]
     Dosage: 25 MG, BID
  10. DIOVAN [Concomitant]
     Dosage: 80 MG, QD
  11. SPIRIVA [Concomitant]
     Dosage: UNK
  12. HUMALOG [Concomitant]
     Dosage: 5 UNITS DAILY
  13. NOVOLIN [Concomitant]
     Dosage: 24 UNITS DAILY

REACTIONS (15)
  - Death [Fatal]
  - Renal failure [Recovered/Resolved]
  - Lymphoma [Recovering/Resolving]
  - Anaemia [Recovering/Resolving]
  - Packed red blood cell transfusion [Unknown]
  - Pneumonia [Recovered/Resolved]
  - Diarrhoea [Recovered/Resolved]
  - Pulmonary arterial hypertension [Recovered/Resolved]
  - Fluid retention [Unknown]
  - Weight increased [Unknown]
  - Dyspnoea [Unknown]
  - Oedema peripheral [Unknown]
  - Drug dose omission [Unknown]
  - Increased upper airway secretion [Unknown]
  - Restlessness [Unknown]
